FAERS Safety Report 21048347 (Version 1)
Quarter: 2022Q3

REPORT INFORMATION
  Report Type: Spontaneous
  Country: JP (occurrence: JP)
  Receive Date: 20220706
  Receipt Date: 20220706
  Transmission Date: 20221027
  Serious: Yes (Other)
  Sender: FDA-Public Use
  Company Number: JP-ELI_LILLY_AND_COMPANY-JP202205012784

PATIENT
  Age: 73 Year
  Sex: Female

DRUGS (2)
  1. OLUMIANT [Suspect]
     Active Substance: BARICITINIB
     Indication: COVID-19 pneumonia
     Dosage: 2 MG, DAILY
     Route: 048
     Dates: start: 20210528, end: 20210610
  2. REMDESIVIR [Concomitant]
     Active Substance: REMDESIVIR
     Indication: COVID-19 pneumonia
     Dosage: 200 MG, DAILY
     Route: 041
     Dates: start: 20210528, end: 20210528

REACTIONS (1)
  - Hepatitis B DNA assay positive [Recovered/Resolved]

NARRATIVE: CASE EVENT DATE: 20210903
